FAERS Safety Report 8134228-4 (Version None)
Quarter: 2012Q1

REPORT INFORMATION
  Report Type: 
  Country: None (occurrence: None)
  Receive Date: 20120201
  Receipt Date: 20120123
  Transmission Date: 20120608
  Serious: Yes (Other)
  Sender: FDA-Public Use
  Company Number: 2012030925

PATIENT
  Sex: Male

DRUGS (3)
  1. PRIVIGEN [Suspect]
     Dosage: (INTRAVENOUS (NOT OTHERWISE SPECIFIED)), (INTRAVENOUS (NOT OTHERWISE SPECIFIED) , (INTRAVENOUS (NOT
     Route: 042
     Dates: start: 20111115
  2. PRIVIGEN [Suspect]
     Dosage: (INTRAVENOUS (NOT OTHERWISE SPECIFIED)), (INTRAVENOUS (NOT OTHERWISE SPECIFIED) , (INTRAVENOUS (NOT
     Route: 042
     Dates: start: 20110802
  3. PRIVIGEN [Suspect]
     Dosage: (INTRAVENOUS (NOT OTHERWISE SPECIFIED)), (INTRAVENOUS (NOT OTHERWISE SPECIFIED) , (INTRAVENOUS (NOT
     Route: 042
     Dates: start: 20110927

REACTIONS (7)
  - HEADACHE [None]
  - MOBILITY DECREASED [None]
  - MUSCLE TIGHTNESS [None]
  - MUSCULAR WEAKNESS [None]
  - BALANCE DISORDER [None]
  - DRUG INEFFECTIVE [None]
  - PARAESTHESIA [None]
